FAERS Safety Report 10159306 (Version 1)
Quarter: 2014Q2

REPORT INFORMATION
  Report Type: Spontaneous
  Country: US (occurrence: US)
  Receive Date: 20140508
  Receipt Date: 20140508
  Transmission Date: 20141212
  Serious: No
  Sender: FDA-Public Use
  Company Number: US-009507513-1404USA009871

PATIENT
  Sex: Female

DRUGS (7)
  1. PEGINTRON [Suspect]
     Indication: HEPATITIS C
     Dosage: REDIPEN, 0.5 ML, Q7DAYS
     Dates: start: 20140219
  2. REBETOL [Suspect]
     Indication: HEPATITIS C
     Dosage: 400 MG, BID (TWICE A DAY)
     Route: 048
     Dates: start: 20140218
  3. SOVALDI [Suspect]
     Dosage: 400 MG, QD
  4. ZOFRAN [Concomitant]
     Dosage: UNK
  5. CARDIZEM [Concomitant]
     Dosage: 240 MG, QD
  6. PRILOSEC [Concomitant]
     Dosage: 40 MG, QD
  7. DETROL [Concomitant]
     Dosage: 4 MG, QD

REACTIONS (3)
  - Nausea [Unknown]
  - Vomiting [Unknown]
  - Fatigue [Unknown]
